FAERS Safety Report 11930802 (Version 9)
Quarter: 2019Q3

REPORT INFORMATION
  Report Type: Report from Study
  Country: CA (occurrence: CA)
  Receive Date: 20160120
  Receipt Date: 20190807
  Transmission Date: 20191004
  Serious: Yes (Other)
  Sender: FDA-Public Use
  Company Number: PHHY2015CA123793

PATIENT
  Age: 37 Year
  Sex: Female

DRUGS (4)
  1. TOPAMAX [Concomitant]
     Active Substance: TOPIRAMATE
     Indication: PRODUCT USED FOR UNKNOWN INDICATION
     Route: 065
  2. TAMOXIFEN [Suspect]
     Active Substance: TAMOXIFEN
     Indication: PRODUCT USED FOR UNKNOWN INDICATION
     Route: 065
  3. KEPPRA [Concomitant]
     Active Substance: LEVETIRACETAM
     Indication: PRODUCT USED FOR UNKNOWN INDICATION
     Route: 065
  4. TASIGNA [Suspect]
     Active Substance: NILOTINIB
     Indication: CHRONIC MYELOID LEUKAEMIA
     Dosage: 300 MG, BID
     Route: 048
     Dates: start: 20151003

REACTIONS (32)
  - Menstruation irregular [Unknown]
  - Blood iron decreased [Unknown]
  - Fatigue [Unknown]
  - Anaemia [Unknown]
  - Breast cancer [Unknown]
  - Ear disorder [Unknown]
  - Pruritus generalised [Recovering/Resolving]
  - Insomnia [Unknown]
  - Dry throat [Unknown]
  - Dysmenorrhoea [Unknown]
  - Malaise [Unknown]
  - Hepatic enzyme increased [Recovered/Resolved]
  - Full blood count decreased [Unknown]
  - Breast pain [Unknown]
  - Skin sensitisation [Unknown]
  - Arthralgia [Unknown]
  - Headache [Unknown]
  - Breast cyst [Unknown]
  - Auditory disorder [Unknown]
  - Ear pain [Unknown]
  - Pain [Unknown]
  - Alopecia [Unknown]
  - Breast enlargement [Unknown]
  - Chromaturia [Unknown]
  - Bone pain [Unknown]
  - Acne [Unknown]
  - Initial insomnia [Unknown]
  - Menorrhagia [Unknown]
  - Muscular weakness [Not Recovered/Not Resolved]
  - Haemoglobin decreased [Unknown]
  - Pruritus [Not Recovered/Not Resolved]
  - Dizziness [Unknown]

NARRATIVE: CASE EVENT DATE: 20151220
